FAERS Safety Report 15491947 (Version 1)
Quarter: 2018Q4

REPORT INFORMATION
  Report Type: Spontaneous
  Country: DE (occurrence: DE)
  Receive Date: 20181012
  Receipt Date: 20181012
  Transmission Date: 20190205
  Serious: Yes (Other)
  Sender: FDA-Public Use
  Company Number: DE-SUN PHARMACEUTICAL INDUSTRIES LTD-2018RR-187480

PATIENT
  Age: 67 Year
  Sex: Male

DRUGS (4)
  1. IMATINIB. [Suspect]
     Active Substance: IMATINIB MESYLATE
     Dosage: 100 MG, QD
     Route: 065
  2. IMATINIB. [Suspect]
     Active Substance: IMATINIB MESYLATE
     Dosage: 100 MG, QOD
     Route: 065
  3. IMATINIB. [Suspect]
     Active Substance: IMATINIB MESYLATE
     Indication: MYELOPROLIFERATIVE NEOPLASM
     Dosage: 200 MG, QD
     Route: 065
  4. IMATINIB. [Suspect]
     Active Substance: IMATINIB MESYLATE
     Dosage: 400 MG, QD
     Route: 065

REACTIONS (10)
  - Blast cell crisis [Unknown]
  - Chills [Unknown]
  - Pyrexia [Unknown]
  - Drug resistance [Unknown]
  - Myeloproliferative neoplasm [Unknown]
  - Neutropenia [Recovered/Resolved]
  - Chromosome analysis abnormal [Unknown]
  - Pleural effusion [Unknown]
  - Hyperhidrosis [Unknown]
  - Night sweats [Unknown]
